FAERS Safety Report 25514023 (Version 1)
Quarter: 2025Q3

REPORT INFORMATION
  Report Type: Spontaneous
  Country: US (occurrence: US)
  Receive Date: 20250703
  Receipt Date: 20250703
  Transmission Date: 20251021
  Serious: Yes (Other)
  Sender: SANOFI AVENTIS
  Company Number: US-SA-2025SA187718

PATIENT
  Sex: Male

DRUGS (5)
  1. KEVZARA [Suspect]
     Active Substance: SARILUMAB
     Indication: Rheumatoid arthritis
     Dosage: 200 MG, QOW (INJECT 200MG SUBCUTANEOUSLY EVERY TWO WEEKS)
     Route: 058
  2. ELIQUIS [Concomitant]
     Active Substance: APIXABAN
  3. NAPROXEN [Concomitant]
     Active Substance: NAPROXEN
  4. SULFAMETHOXAZOLE [Concomitant]
     Active Substance: SULFAMETHOXAZOLE
  5. TAMSULOSIN [Concomitant]
     Active Substance: TAMSULOSIN

REACTIONS (2)
  - Prostate cancer [Not Recovered/Not Resolved]
  - White blood cell count decreased [Not Recovered/Not Resolved]
